FAERS Safety Report 13981958 (Version 3)
Quarter: 2017Q4

REPORT INFORMATION
  Report Type: Report from Study
  Country: IL (occurrence: IL)
  Receive Date: 20170918
  Receipt Date: 20171011
  Transmission Date: 20180321
  Serious: Yes (Hospitalization)
  Sender: FDA-Public Use
  Company Number: IL-BIOGEN-2017BI00457343

PATIENT
  Sex: Female

DRUGS (1)
  1. TECFIDERA [Suspect]
     Active Substance: DIMETHYL FUMARATE
     Indication: MULTIPLE SCLEROSIS
     Dosage: STARTING DOSE
     Route: 048
     Dates: start: 20170829

REACTIONS (5)
  - Micturition disorder [Unknown]
  - Flushing [Unknown]
  - Gait inability [Not Recovered/Not Resolved]
  - Visual impairment [Unknown]
  - Speech disorder [Not Recovered/Not Resolved]
